FAERS Safety Report 9837296 (Version 1)
Quarter: 2014Q1

REPORT INFORMATION
  Report Type: Spontaneous
  Country: US (occurrence: US)
  Receive Date: 20140123
  Receipt Date: 20140123
  Transmission Date: 20141002
  Serious: No
  Sender: FDA-Public Use
  Company Number: US-PFIZER INC-2014018878

PATIENT
  Age: 86 Year
  Sex: Male

DRUGS (1)
  1. XALKORI [Suspect]
     Indication: LUNG NEOPLASM MALIGNANT
     Dosage: 250 MG, 2X/DAY (TAKE 1 CAPSULE TWICE A DAY BY MOUTH)
     Route: 048

REACTIONS (3)
  - Diarrhoea [Recovered/Resolved]
  - Constipation [Recovered/Resolved]
  - Photopsia [Recovered/Resolved]
